FAERS Safety Report 16568481 (Version 15)
Quarter: 2020Q3

REPORT INFORMATION
  Report Type: Report from Study
  Country: FR (occurrence: FR)
  Receive Date: 20190712
  Receipt Date: 20200731
  Transmission Date: 20201102
  Serious: Yes (Death, Hospitalization, Other)
  Sender: FDA-Public Use
  Company Number: PHHY2019FR161521

PATIENT
  Age: 74 Year
  Sex: Male
  Weight: 88 kg

DRUGS (29)
  1. ADOPORT [Suspect]
     Active Substance: TACROLIMUS
     Dosage: 8 MG, UNKNOWN
     Route: 048
     Dates: start: 20190608, end: 20190611
  2. ADOPORT [Suspect]
     Active Substance: TACROLIMUS
     Dosage: 8 MG, UNKNOWN
     Route: 048
     Dates: start: 20190622, end: 20190623
  3. ADOPORT [Suspect]
     Active Substance: TACROLIMUS
     Dosage: 6 MG, UNKNOWN
     Route: 048
     Dates: start: 20190705, end: 20190713
  4. LANSOPRAZOLE. [Concomitant]
     Active Substance: LANSOPRAZOLE
     Indication: PRODUCT USED FOR UNKNOWN INDICATION
     Dosage: UNK
     Route: 065
     Dates: start: 20190608
  5. BISOPROLOL [Concomitant]
     Active Substance: BISOPROLOL
     Indication: PRODUCT USED FOR UNKNOWN INDICATION
     Dosage: UNK
     Route: 065
     Dates: start: 20190609
  6. ADOPORT [Suspect]
     Active Substance: TACROLIMUS
     Dosage: 6 MG, UNKNOWN
     Route: 048
     Dates: start: 20190611, end: 20190612
  7. ADOPORT [Suspect]
     Active Substance: TACROLIMUS
     Dosage: 5 MG, UNKNOWN
     Route: 048
     Dates: start: 20190615, end: 20190616
  8. ADOPORT [Suspect]
     Active Substance: TACROLIMUS
     Dosage: 6 MG, UNKNOWN
     Route: 048
     Dates: start: 20190616, end: 20190620
  9. ADOPORT [Suspect]
     Active Substance: TACROLIMUS
     Dosage: 5 MG, UNKNOWN
     Route: 048
     Dates: start: 20190628, end: 20190630
  10. ALFUZOSIN [Concomitant]
     Active Substance: ALFUZOSIN
     Indication: PRODUCT USED FOR UNKNOWN INDICATION
     Dosage: UNK
     Route: 065
     Dates: start: 20190610
  11. ADOPORT [Suspect]
     Active Substance: TACROLIMUS
     Dosage: 4 MG, UNKNOWN
     Route: 048
     Dates: start: 20190713, end: 20190722
  12. COTRIMOXAZOL [Concomitant]
     Active Substance: SULFAMETHOXAZOLE\TRIMETHOPRIM
     Indication: PRODUCT USED FOR UNKNOWN INDICATION
     Dosage: UNK
     Route: 065
     Dates: start: 20190614
  13. MYCOPHENOLATE MOFETIL. [Concomitant]
     Active Substance: MYCOPHENOLATE MOFETIL
     Indication: PRODUCT USED FOR UNKNOWN INDICATION
     Dosage: UNK
     Route: 065
     Dates: start: 20190608
  14. INSULINE ASPARTE [Concomitant]
     Active Substance: INSULIN ASPART
     Indication: PRODUCT USED FOR UNKNOWN INDICATION
     Dosage: UNK
     Route: 065
     Dates: start: 20190608
  15. ADOPORT [Suspect]
     Active Substance: TACROLIMUS
     Dosage: 4 MG, UNKNOWN
     Route: 048
     Dates: start: 20190612, end: 20190615
  16. ADOPORT [Suspect]
     Active Substance: TACROLIMUS
     Dosage: 4 MG, UNKNOWN
     Route: 048
     Dates: start: 20190624, end: 20190628
  17. ADOPORT [Suspect]
     Active Substance: TACROLIMUS
     Dosage: 3 MG, UNKNOWN
     Route: 065
  18. VALGANCICLOVIR. [Concomitant]
     Active Substance: VALGANCICLOVIR
     Indication: PRODUCT USED FOR UNKNOWN INDICATION
     Dosage: UNK
     Route: 065
     Dates: start: 20190614
  19. PREDNISOLONE. [Concomitant]
     Active Substance: PREDNISOLONE
     Indication: PRODUCT USED FOR UNKNOWN INDICATION
     Dosage: UNK
     Route: 065
     Dates: start: 20190609
  20. ADOPORT [Suspect]
     Active Substance: TACROLIMUS
     Indication: RENAL TRANSPLANT
     Dosage: 5 MG, UNKNOWN
     Route: 048
     Dates: start: 20190608, end: 20190608
  21. ADOPORT [Suspect]
     Active Substance: TACROLIMUS
     Dosage: 6.5 MG, UNKNOWN
     Route: 048
     Dates: start: 20190620, end: 20190621
  22. ADOPORT [Suspect]
     Active Substance: TACROLIMUS
     Dosage: 6.5 MG, UNKNOWN
     Route: 048
     Dates: start: 20190623, end: 20190624
  23. ADOPORT [Suspect]
     Active Substance: TACROLIMUS
     Dosage: 7 MG, UNKNOWN
     Route: 048
     Dates: start: 20190630
  24. ADOPORT [Suspect]
     Active Substance: TACROLIMUS
     Dosage: 5 MG, UNKNOWN
     Route: 048
     Dates: start: 20190722
  25. ADOPORT [Suspect]
     Active Substance: TACROLIMUS
     Dosage: 4 MG, UNKNOWN
     Route: 048
     Dates: start: 20191211
  26. INSULIN GLARGINE [Concomitant]
     Active Substance: INSULIN GLARGINE
     Indication: PRODUCT USED FOR UNKNOWN INDICATION
     Dosage: UNK
     Route: 065
     Dates: start: 20190610
  27. ADOPORT [Suspect]
     Active Substance: TACROLIMUS
     Dosage: 7.5 MG, UNKNOWN
     Route: 048
     Dates: start: 20190621, end: 20190622
  28. ADOPORT [Suspect]
     Active Substance: TACROLIMUS
     Dosage: 8 MG, UNKNOWN
     Route: 048
     Dates: start: 20190703, end: 20190705
  29. ADOPORT [Suspect]
     Active Substance: TACROLIMUS
     Dosage: 3 MG
     Route: 048
     Dates: start: 20200303

REACTIONS (11)
  - Cytomegalovirus test positive [Fatal]
  - Tooth abscess [Recovered/Resolved]
  - Endocarditis [Fatal]
  - Renal impairment [Recovering/Resolving]
  - Angina pectoris [Recovered/Resolved]
  - Skin ulcer [Recovering/Resolving]
  - Anaemia [Recovered/Resolved]
  - Pyrexia [Recovered/Resolved]
  - Anaemia [Recovered/Resolved]
  - Angina pectoris [Recovered/Resolved]
  - Urinary tract infection [Recovered/Resolved]

NARRATIVE: CASE EVENT DATE: 20190610
